FAERS Safety Report 8773644 (Version 4)
Quarter: 2012Q4

REPORT INFORMATION
  Report Type: Report from Study
  Country: IT (occurrence: IT)
  Receive Date: 20120907
  Receipt Date: 20121106
  Transmission Date: 20130627
  Serious: Yes (Hospitalization)
  Sender: FDA-Public Use
  Company Number: IT-JNJFOC-20120900919

PATIENT
  Age: 12 Year
  Sex: Female
  Weight: 45 kg

DRUGS (2)
  1. REMICADE [Suspect]
     Indication: CROHN^S DISEASE
     Route: 042
     Dates: start: 20120130, end: 20120515
  2. HUMIRA [Suspect]
     Indication: CROHN^S DISEASE
     Dates: start: 20120601

REACTIONS (1)
  - Crohn^s disease [Recovered/Resolved with Sequelae]
